FAERS Safety Report 6478571-3 (Version None)
Quarter: 2009Q4

REPORT INFORMATION
  Report Type: 
  Country: None (occurrence: None)
  Receive Date: 20091207
  Receipt Date: 20091126
  Transmission Date: 20100525
  Serious: Yes (Hospitalization)
  Sender: FDA-Public Use
  Company Number: BR-ELI_LILLY_AND_COMPANY-BR200910004603

PATIENT
  Age: 69 Year
  Sex: Male

DRUGS (1)
  1. FORTEO [Suspect]
     Indication: OSTEOPENIA
     Dosage: UNK, UNKNOWN
     Route: 065

REACTIONS (2)
  - INGUINAL HERNIA [None]
  - PAIN [None]
